FAERS Safety Report 22627855 (Version 1)
Quarter: 2023Q2

REPORT INFORMATION
  Report Type: Spontaneous
  Country: US (occurrence: US)
  Receive Date: 20230622
  Receipt Date: 20230622
  Transmission Date: 20230722
  Serious: Yes (Other)
  Sender: FDA-Public Use
  Company Number: US-TOLMAR, INC.-23US041446

PATIENT
  Sex: Male

DRUGS (3)
  1. JATENZO [Suspect]
     Active Substance: TESTOSTERONE UNDECANOATE
     Indication: Product used for unknown indication
     Dosage: 158 MILLIGRAM, BID
     Route: 048
     Dates: end: 20230418
  2. JATENZO [Suspect]
     Active Substance: TESTOSTERONE UNDECANOATE
     Dosage: 237 MILLIGRAM, QD
     Route: 048
     Dates: end: 20230418
  3. UNSPECIFIED INGREDIENT [Suspect]
     Active Substance: UNSPECIFIED INGREDIENT
     Indication: Blood pressure abnormal
     Dosage: UNK

REACTIONS (1)
  - Blood pressure increased [Recovering/Resolving]
